FAERS Safety Report 5619995-3 (Version None)
Quarter: 2008Q1

REPORT INFORMATION
  Report Type: 
  Country: None (occurrence: None)
  Receive Date: 20080208
  Receipt Date: 20080204
  Transmission Date: 20080703
  Serious: Yes (Life-Threatening)
  Sender: FDA-Public Use
  Company Number: JP-GENENTECH-255393

PATIENT
  Sex: Female

DRUGS (1)
  1. GRTPA [Suspect]
     Indication: DRUG USE FOR UNKNOWN INDICATION
     Dosage: UNK, UNK
     Route: 042

REACTIONS (2)
  - QUADRIPARESIS [None]
  - SPINAL CORD INJURY [None]
